FAERS Safety Report 4587195-4 (Version None)
Quarter: 2005Q1

REPORT INFORMATION
  Report Type: 
  Country: None (occurrence: None)
  Receive Date: 20050215
  Receipt Date: 20050204
  Transmission Date: 20050727
  Serious: Yes (Hospitalization)
  Sender: FDA-Public Use
  Company Number: USA-2005-0018736

PATIENT
  Age: 34 Year
  Sex: Female

DRUGS (6)
  1. OXYCONTIN [Suspect]
     Indication: PAIN
     Dosage: 40 MG, Q112H
  2. WELLBUTRIN [Concomitant]
  3. DEPAKOTE [Concomitant]
  4. GLUCOPHAGE [Concomitant]
  5. GLIPIZIDE [Concomitant]
  6. COUMADIN [Concomitant]

REACTIONS (3)
  - DENTAL CARIES [None]
  - THROMBOSIS [None]
  - TOOTH LOSS [None]
